FAERS Safety Report 9979839 (Version 1)
Quarter: 2014Q1

REPORT INFORMATION
  Report Type: Report from Study
  Country: US (occurrence: US)
  Receive Date: 20140306
  Receipt Date: 20140306
  Transmission Date: 20141002
  Serious: No
  Sender: FDA-Public Use
  Company Number: US-ABBVIE-13P-163-1170311-00

PATIENT
  Age: 53 Year
  Sex: Female

DRUGS (19)
  1. HUMIRA [Suspect]
     Indication: PSORIATIC ARTHROPATHY
     Dates: start: 201305
  2. KLONOPIN [Concomitant]
     Indication: ANXIETY
  3. ADVAIR DISKUS [Concomitant]
     Indication: ASTHMA
     Dosage: 250/50
  4. PROAIR [Concomitant]
     Indication: ASTHMA
     Dosage: Q 4
  5. RECLAST [Concomitant]
     Indication: OSTEOPOROSIS
  6. PROMETHAZINE [Concomitant]
     Indication: NAUSEA
  7. VITAMIN D [Concomitant]
     Indication: OSTEOPOROSIS
  8. TUMS [Concomitant]
     Indication: MINERAL SUPPLEMENTATION
  9. OXYCODONE [Concomitant]
     Indication: PSORIATIC ARTHROPATHY
     Dosage: Q 4
  10. OXYCODONE [Concomitant]
     Indication: PAIN
  11. TRIAMCINOLONE [Concomitant]
     Indication: PSORIASIS
  12. MIRALAX [Concomitant]
     Indication: SUPPLEMENTATION THERAPY
  13. ALBUTEROL SULFATE [Concomitant]
     Indication: WHEEZING
     Dosage: NEBULIZER
  14. TRIAMTERENE [Concomitant]
     Indication: FLUID RETENTION
     Dosage: DAILY
     Route: 058
  15. TRIAMTERENE [Concomitant]
     Indication: JOINT SWELLING
  16. RELISTOR [Concomitant]
     Indication: INTESTINAL OBSTRUCTION
  17. TYLENOL [Concomitant]
     Indication: PRODUCT USED FOR UNKNOWN INDICATION
  18. EFFEXOR [Concomitant]
     Indication: ANXIETY
  19. EFFEXOR [Concomitant]

REACTIONS (4)
  - Oropharyngeal pain [Recovered/Resolved]
  - Inappropriate schedule of drug administration [Unknown]
  - Upper-airway cough syndrome [Recovered/Resolved]
  - Muscle spasms [Recovered/Resolved]
